FAERS Safety Report 8205567-3 (Version None)
Quarter: 2012Q1

REPORT INFORMATION
  Report Type: 
  Country: None (occurrence: None)
  Receive Date: 20120313
  Receipt Date: 20120229
  Transmission Date: 20120608
  Serious: Yes (Death, Hospitalization)
  Sender: FDA-Public Use
  Company Number: US-ACTELION-A-NJ2012-62027

PATIENT

DRUGS (13)
  1. TRACLEER [Suspect]
     Indication: PULMONARY ARTERIAL HYPERTENSION
     Dosage: 125 MG, BID
     Route: 048
     Dates: start: 20041111
  2. SPIRIVA [Concomitant]
  3. ADVAIR DISKUS 100/50 [Concomitant]
  4. COREG [Concomitant]
  5. REVATIO [Concomitant]
  6. LANOXIN [Concomitant]
  7. IPRATROPIUM [Concomitant]
  8. REQUIP [Concomitant]
  9. OXYBUTYNIN [Concomitant]
  10. TORSEMIDE [Concomitant]
  11. EMTRICITABINE/TENOFOVIR DISOPROXIL FUMARATE [Concomitant]
  12. ALBUTEROL [Concomitant]
  13. ALDACTONE [Concomitant]

REACTIONS (4)
  - DEATH [None]
  - CHRONIC OBSTRUCTIVE PULMONARY DISEASE [None]
  - PNEUMONIA [None]
  - BRONCHITIS [None]
